FAERS Safety Report 7395517-4 (Version None)
Quarter: 2011Q2

REPORT INFORMATION
  Report Type: 
  Country: None (occurrence: None)
  Receive Date: 20110405
  Receipt Date: 20110322
  Transmission Date: 20111010
  Serious: Yes (Hospitalization)
  Sender: FDA-Public Use
  Company Number: US-JNJFOC-20110309711

PATIENT
  Sex: Female
  Weight: 65.77 kg

DRUGS (15)
  1. REMICADE [Suspect]
     Indication: CROHN'S DISEASE
     Route: 042
  2. FLAGYL [Concomitant]
     Indication: ANTI-INFECTIVE THERAPY
     Route: 048
  3. CRESTOR [Concomitant]
     Indication: BLOOD CHOLESTEROL
     Route: 048
  4. PRISTIQ [Concomitant]
     Indication: DEPRESSION
     Route: 048
  5. PREDNISONE [Concomitant]
     Indication: CROHN'S DISEASE
     Route: 048
  6. XANAX [Concomitant]
     Indication: ANXIETY
     Route: 048
  7. REMICADE [Suspect]
     Route: 042
  8. FENTANYL [Concomitant]
     Indication: PAIN
  9. REMICADE [Suspect]
     Route: 042
  10. PROBIOTICS [Concomitant]
     Indication: GASTROINTESTINAL DISORDER THERAPY
  11. APRISO [Concomitant]
     Indication: CROHN'S DISEASE
     Route: 048
  12. REMICADE [Suspect]
     Indication: RHEUMATOID ARTHRITIS
     Route: 042
  13. CIPRO [Concomitant]
     Indication: ANTI-INFECTIVE THERAPY
     Route: 048
  14. DEXILANT [Concomitant]
     Indication: GASTROOESOPHAGEAL REFLUX DISEASE
     Route: 048
  15. DILAUDID [Concomitant]
     Indication: PAIN
     Route: 048

REACTIONS (14)
  - EPSTEIN-BARR VIRUS INFECTION [None]
  - EYE PRURITUS [None]
  - THROAT IRRITATION [None]
  - ABSCESS [None]
  - HYPERTENSION [None]
  - FISTULA [None]
  - GASTROOESOPHAGEAL REFLUX DISEASE [None]
  - PRURITUS [None]
  - MALAISE [None]
  - INFUSION RELATED REACTION [None]
  - HOT FLUSH [None]
  - TACHYCARDIA [None]
  - CYTOMEGALOVIRUS INFECTION [None]
  - RASH GENERALISED [None]
